FAERS Safety Report 11992985 (Version 1)
Quarter: 2016Q1

REPORT INFORMATION
  Report Type: Report from Study
  Country: US (occurrence: US)
  Receive Date: 20160203
  Receipt Date: 20160203
  Transmission Date: 20160526
  Serious: No
  Sender: FDA-Public Use
  Company Number: US-UCBSA-2015012266

PATIENT
  Sex: Male

DRUGS (2)
  1. LEVETIRACETAM. [Suspect]
     Active Substance: LEVETIRACETAM
     Indication: SEIZURE
     Dosage: ,3 TABLETS IN THE MORNING AND 3 TABLET IN THE EVENING1500 MG, 2X/DAY (BID)
  2. LEVETIRACETAM. [Suspect]
     Active Substance: LEVETIRACETAM
     Indication: EPILEPSY
     Dosage: 1500 MG, 2X/DAY (BID),3 TABLETS IN THE MORNING AND 3 TABLET IN THE EVENING

REACTIONS (3)
  - Activities of daily living impaired [Unknown]
  - Drug prescribing error [Unknown]
  - Seizure [Unknown]
